FAERS Safety Report 22319293 (Version 1)
Quarter: 2023Q2

REPORT INFORMATION
  Report Type: Spontaneous
  Country: US (occurrence: US)
  Receive Date: 20230515
  Receipt Date: 20230515
  Transmission Date: 20230721
  Serious: Yes (Death, Life-Threatening, Hospitalization, Other)
  Sender: FDA-Public Use
  Company Number: US-PFIZER INC-PV202300083714

PATIENT
  Age: 61 Year
  Sex: Female

DRUGS (11)
  1. MANNITOL [Suspect]
     Active Substance: MANNITOL
     Indication: Meningoencephalitis amoebic
     Dosage: UNK
  2. MANNITOL [Suspect]
     Active Substance: MANNITOL
     Indication: Intracranial pressure increased
  3. VANCOMYCIN HYDROCHLORIDE [Suspect]
     Active Substance: VANCOMYCIN HYDROCHLORIDE
     Indication: Meningoencephalitis amoebic
     Dosage: UNK
  4. VANCOMYCIN HYDROCHLORIDE [Suspect]
     Active Substance: VANCOMYCIN HYDROCHLORIDE
     Indication: Evidence based treatment
  5. DEXAMETHASONE [Suspect]
     Active Substance: DEXAMETHASONE
     Indication: Meningoencephalitis amoebic
     Dosage: UNK
  6. IMIPENEM [Suspect]
     Active Substance: IMIPENEM
     Indication: Meningoencephalitis amoebic
     Dosage: UNK
  7. IMIPENEM [Suspect]
     Active Substance: IMIPENEM
     Indication: Evidence based treatment
  8. ACYCLOVIR [Suspect]
     Active Substance: ACYCLOVIR
     Indication: Meningoencephalitis amoebic
     Dosage: UNK
  9. ACYCLOVIR [Suspect]
     Active Substance: ACYCLOVIR
     Indication: Evidence based treatment
  10. AMPHOTERICIN B [Suspect]
     Active Substance: AMPHOTERICIN B
     Indication: Meningoencephalitis amoebic
     Dosage: UNK
  11. GANCICLOVIR [Suspect]
     Active Substance: GANCICLOVIR
     Indication: Meningoencephalitis amoebic
     Dosage: UNK

REACTIONS (1)
  - Drug ineffective [Fatal]
